FAERS Safety Report 25796569 (Version 2)
Quarter: 2025Q3

REPORT INFORMATION
  Report Type: Spontaneous
  Country: US (occurrence: US)
  Receive Date: 20250912
  Receipt Date: 20250919
  Transmission Date: 20251020
  Serious: No
  Sender: SANOFI AVENTIS
  Company Number: US-SA-2025SA271480

PATIENT
  Age: 6 Year
  Sex: Female

DRUGS (1)
  1. DUPIXENT [Suspect]
     Active Substance: DUPILUMAB
     Indication: Dermatitis atopic
     Dosage: 300 MG, Q4W
     Route: 058
     Dates: start: 20230608

REACTIONS (4)
  - Illness [Unknown]
  - Dermatitis atopic [Unknown]
  - Rash [Unknown]
  - Dry skin [Unknown]

NARRATIVE: CASE EVENT DATE: 20250101
